FAERS Safety Report 5924351-4 (Version None)
Quarter: 2008Q4

REPORT INFORMATION
  Report Type: 
  Country: None (occurrence: None)
  Receive Date: 20081020
  Receipt Date: 20081008
  Transmission Date: 20090506
  Serious: Yes (Other)
  Sender: FDA-Public Use
  Company Number: FR-PFIZER INC-2008075752

PATIENT
  Sex: Female
  Weight: 60 kg

DRUGS (1)
  1. CHAMPIX [Suspect]
     Dates: start: 20080811, end: 20080819

REACTIONS (5)
  - CONSTIPATION [None]
  - HAEMATURIA [None]
  - NAUSEA [None]
  - POLLAKIURIA [None]
  - URINARY TRACT INFECTION [None]
